FAERS Safety Report 25981378 (Version 1)
Quarter: 2025Q4

REPORT INFORMATION
  Report Type: Spontaneous
  Country: JP (occurrence: JP)
  Receive Date: 20251030
  Receipt Date: 20251030
  Transmission Date: 20260118
  Serious: Yes (Other)
  Sender: GALDERMA
  Company Number: JP-GALDERMA-JP2025021600

PATIENT

DRUGS (2)
  1. NEMOLIZUMAB [Suspect]
     Active Substance: NEMOLIZUMAB
     Indication: Dermatitis atopic
     Dosage: UNK
     Route: 058
     Dates: start: 202509, end: 202509
  2. NEMOLIZUMAB [Suspect]
     Active Substance: NEMOLIZUMAB
     Dosage: UNK
     Route: 058
     Dates: start: 202510, end: 202510

REACTIONS (3)
  - Dermatitis exfoliative generalised [Unknown]
  - Effusion [Unknown]
  - Oedema [Unknown]

NARRATIVE: CASE EVENT DATE: 20251001
